FAERS Safety Report 18227422 (Version 1)
Quarter: 2020Q3

REPORT INFORMATION
  Report Type: Spontaneous
  Country: US (occurrence: US)
  Receive Date: 20200903
  Receipt Date: 20200903
  Transmission Date: 20201103
  Serious: Yes (Other)
  Sender: FDA-Public Use
  Company Number: None

PATIENT
  Age: 79 Year
  Sex: Male
  Weight: 92.25 kg

DRUGS (10)
  1. MIDODRINE [Concomitant]
     Active Substance: MIDODRINE
  2. EXCEDRIN [Concomitant]
     Active Substance: ACETAMINOPHEN\ASPIRIN\CAFFEINE
  3. MULTI B VITAMIN [Concomitant]
  4. VITAMIN D3 [Concomitant]
     Active Substance: CHOLECALCIFEROL
  5. AIMOVIG [Suspect]
     Active Substance: ERENUMAB-AOOE
     Indication: MIGRAINE
     Dosage: ?          QUANTITY:1 INJECTION(S);OTHER FREQUENCY:1X MONTH;??
     Route: 058
     Dates: start: 20200725, end: 20200829
  6. LIDOCAINE. [Concomitant]
     Active Substance: LIDOCAINE
  7. ANORO [Concomitant]
     Active Substance: UMECLIDINIUM BROMIDE\VILANTEROL TRIFENATATE
  8. MULTI VITAMINS [Concomitant]
     Active Substance: VITAMINS
  9. MAGNESIUM [Concomitant]
     Active Substance: MAGNESIUM
  10. OMEPROZOLE [Concomitant]
     Active Substance: OMEPRAZOLE

REACTIONS (7)
  - Influenza like illness [None]
  - Feeling abnormal [None]
  - Constipation [None]
  - Arthralgia [None]
  - Abdominal pain upper [None]
  - Night sweats [None]
  - Fatigue [None]

NARRATIVE: CASE EVENT DATE: 20200828
